FAERS Safety Report 6728718-6 (Version None)
Quarter: 2010Q2

REPORT INFORMATION
  Report Type: 
  Country: None (occurrence: None)
  Receive Date: 20100517
  Receipt Date: 20100506
  Transmission Date: 20101027
  Serious: Yes (Hospitalization, Other)
  Sender: FDA-Public Use
  Company Number: US-AMGEN-QUU403472

PATIENT
  Sex: Male

DRUGS (1)
  1. ENBREL [Suspect]
     Indication: PSORIASIS
     Route: 058
     Dates: start: 20100130

REACTIONS (5)
  - BACK PAIN [None]
  - CELLULITIS [None]
  - DIABETES MELLITUS [None]
  - LYMPHADENOPATHY [None]
  - NECK MASS [None]
